FAERS Safety Report 22212589 (Version 2)
Quarter: 2024Q4

REPORT INFORMATION
  Report Type: Spontaneous
  Country: US (occurrence: US)
  Receive Date: 20230414
  Receipt Date: 20241126
  Transmission Date: 20250115
  Serious: No
  Sender: PFIZER
  Company Number: US-PFIZER INC-PV202300068325

PATIENT
  Age: 72 Year
  Sex: Female

DRUGS (1)
  1. IBRANCE [Suspect]
     Active Substance: PALBOCICLIB
     Dosage: TAKE 100 MG PO ON DAYS 1-21 OF 35 DAY CYCLE
     Route: 048

REACTIONS (2)
  - Malaise [Unknown]
  - Off label use [Unknown]
